FAERS Safety Report 19674939 (Version 1)
Quarter: 2021Q3

REPORT INFORMATION
  Report Type: Spontaneous
  Country: US (occurrence: US)
  Receive Date: 20210809
  Receipt Date: 20210809
  Transmission Date: 20211014
  Serious: Yes (Hospitalization)
  Sender: FDA-Public Use
  Company Number: None

PATIENT
  Age: 61 Year
  Sex: Female
  Weight: 102 kg

DRUGS (3)
  1. EMPAGLIFLOZIN [Suspect]
     Active Substance: EMPAGLIFLOZIN
     Indication: TYPE 2 DIABETES MELLITUS
     Route: 048
  2. LEVOTHYROXINE 25 MCG ONCE DAILY [Concomitant]
  3. IPRATROPIUM NASAL SPRAY [Concomitant]
     Active Substance: IPRATROPIUM

REACTIONS (9)
  - Bladder discomfort [None]
  - Malaise [None]
  - Urine ketone body present [None]
  - Fatigue [None]
  - Euglycaemic diabetic ketoacidosis [None]
  - Dysuria [None]
  - Nausea [None]
  - Pollakiuria [None]
  - Metabolic acidosis [None]

NARRATIVE: CASE EVENT DATE: 20210701
